FAERS Safety Report 9417049 (Version 2)
Quarter: 2013Q3

REPORT INFORMATION
  Report Type: Spontaneous
  Country: US (occurrence: None)
  Receive Date: 20130722
  Receipt Date: 20130829
  Transmission Date: 20140515
  Serious: Yes (Death)
  Sender: FDA-Public Use
  Company Number: UTC-035332

PATIENT
  Age: 59 Year
  Sex: Female
  Weight: 65 kg

DRUGS (2)
  1. REMODULIN [Suspect]
     Indication: PULMONARY ARTERIAL HYPERTENSION
     Dosage: 90.72 UG/KG (0.063 UG.KG, 1 IN 1 MIN),SUBCUTANEOUS
     Route: 058
     Dates: start: 20101103
  2. ADCIRCA (TADALAFIL) [Concomitant]

REACTIONS (2)
  - Hepatic cirrhosis [None]
  - Hip fracture [None]
